FAERS Safety Report 14757231 (Version 1)
Quarter: 2018Q2

REPORT INFORMATION
  Report Type: Spontaneous
  Country: US (occurrence: US)
  Receive Date: 20180408
  Receipt Date: 20180408
  Transmission Date: 20180711
  Serious: Yes (Hospitalization)
  Sender: FDA-Public Use
  Company Number: None

PATIENT
  Age: 71 Year
  Sex: Female
  Weight: 65.25 kg

DRUGS (6)
  1. CAPECITABINE. [Suspect]
     Active Substance: CAPECITABINE
     Indication: PROPHYLAXIS
     Dosage: ?          QUANTITY:112 DF DOSAGE FORM;?
     Route: 048
     Dates: start: 20180309, end: 20180317
  2. SIMVASTATIN. [Concomitant]
     Active Substance: SIMVASTATIN
  3. BUPROPRION [Concomitant]
     Active Substance: BUPROPION
  4. VITAMIN B12 [Concomitant]
     Active Substance: CYANOCOBALAMIN
  5. FLUOXETINE [Concomitant]
     Active Substance: FLUOXETINE HYDROCHLORIDE
  6. IRON [Concomitant]
     Active Substance: IRON

REACTIONS (17)
  - Therapy change [None]
  - Dehydration [None]
  - Noninfective gingivitis [None]
  - Skin ulcer [None]
  - Dyspnoea [None]
  - Ageusia [None]
  - Aphonia [None]
  - Muscular weakness [None]
  - Drug effect decreased [None]
  - Cheilitis [None]
  - Pain in jaw [None]
  - Tremor [None]
  - Vision blurred [None]
  - Diarrhoea [None]
  - Stomatitis [None]
  - Depression [None]
  - Weight decreased [None]

NARRATIVE: CASE EVENT DATE: 20180309
